FAERS Safety Report 4707054-3 (Version None)
Quarter: 2005Q2

REPORT INFORMATION
  Report Type: 
  Country: None (occurrence: None)
  Receive Date: 20050113
  Receipt Date: 20050113
  Transmission Date: 20051028
  Serious: Yes (Other)
  Sender: FDA-Public Use
  Company Number: None

PATIENT
  Age: 79 Year
  Sex: Female
  Weight: 68.0396 kg

DRUGS (1)
  1. DAYPRO [Suspect]
     Indication: OSTEOARTHRITIS
     Dosage: 600 MG 2 PO QD
     Route: 048
     Dates: start: 20020101, end: 20030101

REACTIONS (1)
  - DRUG INEFFECTIVE [None]
